FAERS Safety Report 5387388-2 (Version None)
Quarter: 2007Q3

REPORT INFORMATION
  Report Type: 
  Country: None (occurrence: None)
  Receive Date: 20070703
  Receipt Date: 20070406
  Transmission Date: 20080115
  Serious: No
  Sender: FDA-Public Use
  Company Number: 2007PV032795

PATIENT
  Age: 56 Year
  Sex: Male

DRUGS (1)
  1. SYMLIN [Suspect]
     Indication: DRUG USE FOR UNKNOWN INDICATION
     Dosage: 60 MCG;TID;SC; 45 MCG;SC; 30 MCG;SC; 15 MCG;SC
     Route: 058
     Dates: start: 20070326

REACTIONS (2)
  - INJECTION SITE INDURATION [None]
  - URTICARIA [None]
